FAERS Safety Report 5224661-2 (Version None)
Quarter: 2007Q1

REPORT INFORMATION
  Report Type: 
  Country: None (occurrence: None)
  Receive Date: 20070126
  Receipt Date: 20070112
  Transmission Date: 20070707
  Serious: Yes (Disabling)
  Sender: FDA-Public Use
  Company Number: 235249

PATIENT
  Age: 58 Year
  Sex: Female

DRUGS (7)
  1. AVASTIN [Suspect]
     Indication: GLIOBLASTOMA MULTIFORME
     Dosage: 350 MG, INTRAVENOUS
     Route: 042
     Dates: start: 20060920, end: 20061228
  2. IRINOTECAN HCL [Suspect]
     Indication: GLIOBLASTOMA MULTIFORME
     Dosage: 220 MG, INTRAVENOUS
     Route: 042
     Dates: start: 20060920
  3. CETUXIMAB(CETUXIMAB) [Suspect]
     Indication: GLIOBLASTOMA MULTIFORME
     Dosage: 450 MG, INTRAVENOUS
     Route: 042
     Dates: start: 20060920
  4. ATROPIN (ATROPINE) [Concomitant]
  5. TAVEGYL (CLEMASTINE FUMARATE) [Concomitant]
  6. CENTYL-K (BENDROFLUMETHIAZIDE, POTASSIUM CHLORIDE) [Concomitant]
  7. PERINDOPRIL ERBUMINE [Concomitant]

REACTIONS (3)
  - FATIGUE [None]
  - HEMIPARESIS [None]
  - LACUNAR INFARCTION [None]
